FAERS Safety Report 9130162 (Version 2)
Quarter: 2013Q2

REPORT INFORMATION
  Report Type: Report from Study
  Country: US (occurrence: US)
  Receive Date: 20130228
  Receipt Date: 20130610
  Transmission Date: 20140414
  Serious: Yes (Other)
  Sender: FDA-Public Use
  Company Number: US-ABBOTT-13P-163-1054368-00

PATIENT
  Age: 21 Year
  Sex: Male
  Weight: 63.56 kg

DRUGS (2)
  1. HUMIRA [Suspect]
     Indication: INTERMEDIATE UVEITIS
     Route: 058
     Dates: start: 20120211
  2. HUMIRA [Suspect]
     Indication: CYSTOID MACULAR OEDEMA

REACTIONS (1)
  - Retinal detachment [Unknown]
